FAERS Safety Report 7121367-X (Version None)
Quarter: 2010Q4

REPORT INFORMATION
  Report Type: 
  Country: None (occurrence: None)
  Receive Date: 20101119
  Receipt Date: 20101119
  Transmission Date: 20110411
  Serious: No
  Sender: FDA-Public Use
  Company Number: None

PATIENT

DRUGS (1)
  1. NIMBEX [Suspect]
     Indication: ENDOTRACHEAL INTUBATION
     Dosage: 5 MG + 10 MG ONCE IV BOLUS
     Route: 040
     Dates: start: 20101118, end: 20101118

REACTIONS (1)
  - DRUG EFFECT DECREASED [None]
